FAERS Safety Report 17475081 (Version 1)
Quarter: 2020Q1

REPORT INFORMATION
  Report Type: Report from Study
  Country: CA (occurrence: CA)
  Receive Date: 20200228
  Receipt Date: 20200228
  Transmission Date: 20200409
  Serious: Yes (Other)
  Sender: FDA-Public Use
  Company Number: CA-JNJFOC-20190739194

PATIENT
  Age: 63 Year
  Sex: Female

DRUGS (4)
  1. SIMPONI [Suspect]
     Active Substance: GOLIMUMAB
     Route: 058
  2. RAMIPRIL. [Concomitant]
     Active Substance: RAMIPRIL
  3. SIMPONI [Suspect]
     Active Substance: GOLIMUMAB
     Dosage: SMARTJECT AUTOINJECTOR
     Route: 058
     Dates: start: 20150306
  4. SIMPONI [Suspect]
     Active Substance: GOLIMUMAB
     Indication: COLITIS ULCERATIVE
     Route: 058
     Dates: start: 20150306

REACTIONS (4)
  - Colitis ulcerative [Unknown]
  - Tooth infection [Not Recovered/Not Resolved]
  - Off label use [Unknown]
  - Product use issue [Unknown]

NARRATIVE: CASE EVENT DATE: 20190129
